FAERS Safety Report 22278993 (Version 2)
Quarter: 2023Q2

REPORT INFORMATION
  Report Type: Spontaneous
  Country: US (occurrence: US)
  Receive Date: 20230503
  Receipt Date: 20230512
  Transmission Date: 20230722
  Serious: No
  Sender: FDA-Public Use
  Company Number: US-PFIZER INC-PV202300077045

PATIENT
  Age: 55 Year
  Sex: Male

DRUGS (2)
  1. EUCRISA [Suspect]
     Active Substance: CRISABOROLE
     Indication: Hand dermatitis
     Dosage: UNK, 2X/DAY (APPLY TO HANDS FOR 2 WEEKS, THEN PRN FOR FLARES)
  2. EUCRISA [Suspect]
     Active Substance: CRISABOROLE
     Indication: Dermatitis atopic

REACTIONS (1)
  - Rash [Unknown]
